FAERS Safety Report 9061564 (Version 1)
Quarter: 2013Q1

REPORT INFORMATION
  Report Type: Spontaneous
  Country: US (occurrence: None)
  Receive Date: 20130208
  Receipt Date: 20130208
  Transmission Date: 20140127
  Serious: Yes (Hospitalization)
  Sender: FDA-Public Use
  Company Number: None

PATIENT
  Age: 63 Year
  Sex: Female
  Weight: 116 kg

DRUGS (16)
  1. WARFARIN [Suspect]
     Indication: THROMBOSIS PROPHYLAXIS
     Dosage: 2-4 WEEKS DAILY PO
  2. WARFARIN [Suspect]
     Indication: KNEE ARTHROPLASTY
     Dosage: 2-4 WEEKS DAILY PO
  3. ASPIRIN [Concomitant]
  4. CARVEDILOL [Concomitant]
  5. ASPIRIN/DIPYRIDAMOLE [Concomitant]
  6. ACETAMINOPHEN/OXYCODONE [Concomitant]
  7. ACETAMINOPHEN [Concomitant]
  8. CALCITRIOL [Concomitant]
  9. DIPHENHYDRAMINE [Concomitant]
  10. DOCUSATE/SENNA [Concomitant]
  11. EZETIMIBE [Concomitant]
  12. FERROUS SULFATE [Concomitant]
  13. FUROSEMIDE [Concomitant]
  14. MOM [Concomitant]
  15. KCL [Concomitant]
  16. PRAVASTATIN [Concomitant]

REACTIONS (2)
  - International normalised ratio increased [None]
  - Lower gastrointestinal haemorrhage [None]
